FAERS Safety Report 15461231 (Version 1)
Quarter: 2018Q4

REPORT INFORMATION
  Report Type: Spontaneous
  Country: IT (occurrence: IT)
  Receive Date: 20181003
  Receipt Date: 20181003
  Transmission Date: 20190204
  Serious: Yes (Other)
  Sender: FDA-Public Use
  Company Number: IT-MYLANLABS-2018M1071988

PATIENT
  Age: 61 Year
  Sex: Male

DRUGS (3)
  1. OXYCODONE MOLTENI [Suspect]
     Active Substance: OXYCODONE HYDROCHLORIDE
     Indication: PROCEDURAL PAIN
     Dosage: 15 MG
  2. ONDANSETRON [Suspect]
     Active Substance: ONDANSETRON
     Indication: PROCEDURAL PAIN
     Dosage: 8 MG
  3. TORADOL [Suspect]
     Active Substance: KETOROLAC TROMETHAMINE
     Indication: PROCEDURAL PAIN
     Dosage: 90 MG

REACTIONS (3)
  - Hypotension [Unknown]
  - Nausea [Unknown]
  - Vomiting [Unknown]
